FAERS Safety Report 10750557 (Version 1)
Quarter: 2015Q1

REPORT INFORMATION
  Report Type: Spontaneous
  Country: US (occurrence: US)
  Receive Date: 20150130
  Receipt Date: 20150130
  Transmission Date: 20150721
  Serious: Yes (Hospitalization)
  Sender: FDA-Public Use
  Company Number: US-SUN PHARMACEUTICAL INDUSTRIES LTD-2015SUN00268

PATIENT

DRUGS (2)
  1. CLONIDINE HYDROCHLORIDE TABLETS, USP 0.3 MG [Suspect]
     Active Substance: CLONIDINE HYDROCHLORIDE
     Indication: HYPERTENSION
     Dosage: 0.3 MG, TWO SERIAL DOSES
     Route: 048
  2. LIBIDO-MAX (YOHIMBINE) [Suspect]
     Active Substance: DIETARY SUPPLEMENT
     Indication: ERECTILE DYSFUNCTION
     Dosage: 5-20 MG
     Route: 065

REACTIONS (1)
  - Hypertensive crisis [Recovered/Resolved]
